FAERS Safety Report 6867462-1 (Version None)
Quarter: 2010Q3

REPORT INFORMATION
  Report Type: 
  Country: None (occurrence: None)
  Receive Date: 20100722
  Receipt Date: 20100715
  Transmission Date: 20110219
  Serious: Yes (Hospitalization)
  Sender: FDA-Public Use
  Company Number: PHHO2010US06729

PATIENT
  Sex: Male
  Weight: 96.145 kg

DRUGS (10)
  1. AFINITOR [Suspect]
     Indication: METASTATIC MALIGNANT MELANOMA
     Dosage: 5MG
     Route: 048
     Dates: start: 20100414, end: 20100425
  2. PACLITAXEL [Suspect]
     Indication: METASTATIC MALIGNANT MELANOMA
     Dosage: 967MG
     Route: 042
     Dates: start: 20100414, end: 20100414
  3. PACLITAXEL [Suspect]
     Dosage: 331 MG
     Route: 042
  4. PACLITAXEL [Suspect]
     Dosage: UNK
  5. CARBOPLATIN [Suspect]
     Indication: METASTATIC MALIGNANT MELANOMA
     Dosage: 972 MG
     Route: 042
     Dates: start: 20100414, end: 20100414
  6. CARBOPLATIN [Suspect]
     Dosage: 875MG
     Route: 042
  7. KEPPRA [Concomitant]
  8. LISINOPRIL [Concomitant]
     Indication: HYPERTENSION
  9. PRILOSEC [Concomitant]
     Indication: GASTROOESOPHAGEAL REFLUX DISEASE
  10. ZYRTEC [Concomitant]
     Indication: SEASONAL ALLERGY

REACTIONS (5)
  - ASTHENIA [None]
  - FATIGUE [None]
  - FEBRILE NEUTROPENIA [None]
  - PYREXIA [None]
  - TUMOUR ASSOCIATED FEVER [None]
